FAERS Safety Report 5153634-3 (Version None)
Quarter: 2006Q4

REPORT INFORMATION
  Report Type: 
  Country: None (occurrence: None)
  Receive Date: 20061114
  Receipt Date: 20061030
  Transmission Date: 20070319
  Serious: Yes (Life-Threatening)
  Sender: FDA-Public Use
  Company Number: CLOF-10363

PATIENT
  Age: 61 Year
  Sex: Female

DRUGS (11)
  1. CLOFARABINE [Suspect]
     Indication: ACUTE MYELOID LEUKAEMIA
     Dosage: 40 MG QD IV
     Route: 042
     Dates: start: 20061007
  2. ARA-C [Suspect]
     Indication: ACUTE MYELOID LEUKAEMIA
     Dosage: 1 G
  3. ARACYTINE [Concomitant]
  4. ZOFRAN [Concomitant]
  5. EFFEXOR [Concomitant]
  6. BROMAZEPAM [Concomitant]
  7. OMEPRAZOLE [Concomitant]
  8. MORPHINE [Concomitant]
  9. NEFOPAM [Concomitant]
  10. CYAMEMAZINE [Concomitant]
  11. VENLAFAXIINE HCL [Concomitant]

REACTIONS (8)
  - AGITATION [None]
  - COGNITIVE DISORDER [None]
  - COMPARTMENT SYNDROME [None]
  - CONFUSIONAL STATE [None]
  - CRYING [None]
  - DELIRIUM [None]
  - ENCEPHALOPATHY [None]
  - HALLUCINATION [None]
